FAERS Safety Report 5529501-X (Version None)
Quarter: 2007Q4

REPORT INFORMATION
  Report Type: 
  Country: None (occurrence: None)
  Receive Date: 20071129
  Receipt Date: 20071119
  Transmission Date: 20080405
  Serious: Yes (Death, Life-Threatening)
  Sender: FDA-Public Use
  Company Number: AR-PFIZER INC-2007097344

PATIENT
  Sex: Male
  Weight: 76 kg

DRUGS (4)
  1. SUTENT [Suspect]
     Indication: RENAL CELL CARCINOMA STAGE UNSPECIFIED
     Route: 048
  2. ENALAPRIL [Concomitant]
     Route: 048
  3. ATENOLOL [Concomitant]
     Route: 048
     Dates: start: 20010101
  4. PANTOPRAZOL [Concomitant]
     Route: 048
     Dates: start: 20061201

REACTIONS (1)
  - HAEMORRHAGE [None]
